FAERS Safety Report 10252230 (Version 1)
Quarter: 2014Q2

REPORT INFORMATION
  Report Type: Spontaneous
  Country: FR (occurrence: FR)
  Receive Date: 20140623
  Receipt Date: 20140623
  Transmission Date: 20141212
  Serious: Yes (Life-Threatening)
  Sender: FDA-Public Use
  Company Number: FR-ASTRAZENECA-2014SE45326

PATIENT
  Age: 25954 Day
  Sex: Female

DRUGS (6)
  1. XEROQUEL [Suspect]
     Indication: BIPOLAR DISORDER
     Route: 048
     Dates: start: 20140605, end: 20140605
  2. BISOPROLOL [Concomitant]
     Route: 048
  3. PREVISCAN [Concomitant]
     Route: 048
  4. LEVOTHYROX [Concomitant]
     Route: 048
  5. LOXAPAC [Concomitant]
     Indication: BIPOLAR DISORDER
     Route: 048
     Dates: start: 20140531
  6. TRANXENE [Concomitant]
     Indication: BIPOLAR DISORDER
     Route: 048
     Dates: start: 20140531

REACTIONS (2)
  - Coma [Recovering/Resolving]
  - Acute respiratory distress syndrome [Recovered/Resolved]
